FAERS Safety Report 4486452-X (Version None)
Quarter: 2004Q4

REPORT INFORMATION
  Report Type: 
  Country: None (occurrence: None)
  Receive Date: 20041026
  Receipt Date: 20041026
  Transmission Date: 20050328
  Serious: Yes (Hospitalization)
  Sender: FDA-Public Use
  Company Number: None

PATIENT
  Age: 69 Year
  Sex: Female

DRUGS (11)
  1. ATORVASTATIN CALCIUM [Suspect]
     Indication: BLOOD CHOLESTEROL INCREASED
     Dosage: 20 MG   QHS   ORAL
     Route: 048
  2. CLOPIDOGREL [Concomitant]
  3. ATENOLOL/HCTZ [Concomitant]
  4. AMLODIPINE [Concomitant]
  5. POTASSIUM [Concomitant]
  6. ZAFIRLUKAST [Concomitant]
  7. ANASTRAZOLE [Concomitant]
  8. OXYCODONE AND ACETAMINOPHEN [Concomitant]
  9. FLUTICASONE PROPIONATE [Concomitant]
  10. ALBUTEROL [Concomitant]
  11. ASPIRIN [Concomitant]

REACTIONS (2)
  - ABASIA [None]
  - MYALGIA [None]
